FAERS Safety Report 16980795 (Version 1)
Quarter: 2019Q4

REPORT INFORMATION
  Report Type: Report from Study
  Country: CO (occurrence: CO)
  Receive Date: 20191031
  Receipt Date: 20191031
  Transmission Date: 20200122
  Serious: Yes (Hospitalization, Other)
  Sender: FDA-Public Use
  Company Number: CO-JNJFOC-20190701458

PATIENT
  Age: 69 Year
  Sex: Female
  Weight: 62 kg

DRUGS (3)
  1. IMBRUVICA [Suspect]
     Active Substance: IBRUTINIB
     Indication: MANTLE CELL LYMPHOMA
     Route: 048
     Dates: start: 2018, end: 20190714
  2. IMBRUVICA [Suspect]
     Active Substance: IBRUTINIB
     Route: 048
     Dates: start: 20190608, end: 20190618
  3. IMBRUVICA [Suspect]
     Active Substance: IBRUTINIB
     Route: 048
     Dates: start: 2018

REACTIONS (12)
  - Neck injury [Recovering/Resolving]
  - Cough [Recovering/Resolving]
  - Headache [Recovered/Resolved]
  - Wound [Unknown]
  - Chest pain [Recovered/Resolved]
  - Tonsillectomy [Recovering/Resolving]
  - Diarrhoea [Unknown]
  - Erythema [Unknown]
  - Haemorrhage [Recovering/Resolving]
  - Synovial cyst [Recovering/Resolving]
  - Dizziness [Recovered/Resolved]
  - Infection [Recovering/Resolving]

NARRATIVE: CASE EVENT DATE: 201812
